FAERS Safety Report 9478289 (Version 1)
Quarter: 2013Q3

REPORT INFORMATION
  Report Type: Spontaneous
  Country: US (occurrence: None)
  Receive Date: 20130822
  Receipt Date: 20130822
  Transmission Date: 20140515
  Serious: Yes (Other)
  Sender: FDA-Public Use
  Company Number: SYM-2013-08777

PATIENT
  Sex: 0

DRUGS (2)
  1. FLUOROURACIL (FLUOROURACIL) (FLUOROURACIL) [Suspect]
     Indication: METASTASES TO LIVER
  2. OXAPLATIN [Suspect]
     Indication: METASTASES TO LIVER

REACTIONS (2)
  - Hepatic failure [None]
  - Ascites [None]
